FAERS Safety Report 10485087 (Version 1)
Quarter: 2014Q3

REPORT INFORMATION
  Report Type: Spontaneous
  Country: US (occurrence: US)
  Receive Date: 20140930
  Receipt Date: 20140930
  Transmission Date: 20150326
  Serious: No
  Sender: FDA-Public Use
  Company Number: US-MALLINCKRODT-T201402827

PATIENT
  Age: 49 Year
  Sex: Male

DRUGS (2)
  1. METHYLPHENIDATE HYDROCHLORIDE EXTENDED RELEASE TABLETS [Suspect]
     Active Substance: METHYLPHENIDATE HYDROCHLORIDE
     Dosage: 36 MG, QD
     Route: 065
     Dates: start: 201404
  2. METHYLPHENIDATE HYDROCHLORIDE EXTENDED RELEASE TABLETS [Suspect]
     Active Substance: METHYLPHENIDATE HYDROCHLORIDE
     Indication: ATTENTION DEFICIT/HYPERACTIVITY DISORDER
     Dosage: 54 MG, TID
     Route: 065
     Dates: start: 201305

REACTIONS (6)
  - Drug effect increased [Unknown]
  - Somnolence [Unknown]
  - Agitation [Unknown]
  - Off label use [Unknown]
  - Anger [Unknown]
  - Change in sustained attention [Unknown]
